FAERS Safety Report 6566151-0 (Version None)
Quarter: 2010Q1

REPORT INFORMATION
  Report Type: 
  Country: None (occurrence: None)
  Receive Date: 20100202
  Receipt Date: 20100125
  Transmission Date: 20100710
  Serious: Yes (Hospitalization, Other)
  Sender: FDA-Public Use
  Company Number: US-JNJFOC-20090903901

PATIENT
  Sex: Male
  Weight: 73.48 kg

DRUGS (19)
  1. SANDOZ FENTANYL TRANSDERMAL SYSTEM [Suspect]
     Indication: ABDOMINAL PAIN UPPER
     Route: 062
     Dates: start: 20090701
  2. SANDOZ FENTANYL TRANSDERMAL SYSTEM [Suspect]
     Dosage: 3 PATCHES OF 50 UG/HR TO MAKE A DOSE OF 150 UG/HR
     Route: 062
     Dates: start: 20090701
  3. SANDOZ FENTANYL TRANSDERMAL SYSTEM [Suspect]
     Indication: ABDOMINAL PAIN
     Route: 062
     Dates: start: 20090701
  4. SANDOZ FENTANYL TRANSDERMAL SYSTEM [Suspect]
     Dosage: 3 PATCHES OF 50 UG/HR TO MAKE A DOSE OF 150 UG/HR
     Route: 062
     Dates: start: 20090701
  5. DURAGESIC-100 [Suspect]
     Indication: ABDOMINAL PAIN
     Route: 062
  6. FENTANYL CITRATE [Suspect]
     Indication: ABDOMINAL PAIN UPPER
     Route: 062
  7. FENTANYL CITRATE [Suspect]
     Route: 062
  8. FENTANYL CITRATE [Suspect]
     Indication: ABDOMINAL PAIN
     Route: 062
  9. FENTANYL CITRATE [Suspect]
     Route: 062
  10. FENTANYL [Suspect]
     Indication: ABDOMINAL PAIN UPPER
     Route: 062
     Dates: start: 20080701
  11. FENTANYL [Suspect]
     Indication: ABDOMINAL PAIN
     Route: 062
     Dates: start: 20080701
  12. FENTANYL [Suspect]
     Route: 062
  13. XANAX [Concomitant]
     Indication: ANXIETY
     Dosage: EVERY 4-6 HOURS AS NEEDED
     Route: 048
  14. TRAZODONE [Concomitant]
     Indication: SLEEP DISORDER
     Dosage: AT BED TIME
     Route: 048
  15. TRAZODONE [Concomitant]
     Indication: DEPRESSION
     Dosage: AT BED TIME
     Route: 048
  16. NEXIUM [Concomitant]
     Indication: PANCREATITIS
     Route: 048
  17. PREVACID [Concomitant]
     Indication: PANCREATITIS
     Route: 048
  18. UNKNOWN MEDICATION [Concomitant]
     Indication: ANXIETY
     Route: 048
  19. FISH OIL [Concomitant]
     Indication: MEDICAL DIET
     Route: 048

REACTIONS (18)
  - ABDOMINAL PAIN [None]
  - ABNORMAL LOSS OF WEIGHT [None]
  - DIABETES MELLITUS [None]
  - DRUG INEFFECTIVE [None]
  - DRUG TOLERANCE [None]
  - DYSPEPSIA [None]
  - FEELING ABNORMAL [None]
  - INAPPROPRIATE SCHEDULE OF DRUG ADMINISTRATION [None]
  - INTENTIONAL DRUG MISUSE [None]
  - MALAISE [None]
  - PANCREATITIS [None]
  - PANIC DISORDER [None]
  - PHOTOPHOBIA [None]
  - PRODUCT COUNTERFEIT [None]
  - PRODUCT QUALITY ISSUE [None]
  - THROAT TIGHTNESS [None]
  - TREATMENT NONCOMPLIANCE [None]
  - WITHDRAWAL SYNDROME [None]
